FAERS Safety Report 6916271-3 (Version None)
Quarter: 2010Q3

REPORT INFORMATION
  Report Type: 
  Country: None (occurrence: None)
  Receive Date: 20100804
  Receipt Date: 20100721
  Transmission Date: 20110219
  Serious: Yes (Life-Threatening, Other)
  Sender: FDA-Public Use
  Company Number: 2010SP002107

PATIENT
  Age: 25 Year
  Sex: Male

DRUGS (2)
  1. ALVESCO [Suspect]
     Indication: ASTHMA
     Dosage: 160 UG; 1X; INHALATION
     Route: 055
     Dates: start: 20100721, end: 20100721
  2. BUDESONIDE [Concomitant]

REACTIONS (3)
  - ANAPHYLACTIC REACTION [None]
  - ANXIETY [None]
  - RESPIRATORY DISORDER [None]
